FAERS Safety Report 11873734 (Version 1)
Quarter: 2015Q4

REPORT INFORMATION
  Report Type: Spontaneous
  Country: FR (occurrence: FR)
  Receive Date: 20151229
  Receipt Date: 20151229
  Transmission Date: 20160305
  Serious: Yes (Hospitalization)
  Sender: FDA-Public Use
  Company Number: PHHY2015FR167024

PATIENT
  Age: 83 Year
  Sex: Female

DRUGS (12)
  1. RIMACTAN SANDOZ [Suspect]
     Active Substance: RIFAMPIN
     Indication: DEVICE RELATED INFECTION
     Dosage: 1 UNK, UNK
     Route: 048
     Dates: start: 20151012, end: 20151103
  2. DAFALGAN [Concomitant]
     Active Substance: ACETAMINOPHEN
     Indication: PRODUCT USED FOR UNKNOWN INDICATION
     Route: 065
  3. AMYCOR [Concomitant]
     Active Substance: BIFONAZOLE
     Indication: PRODUCT USED FOR UNKNOWN INDICATION
     Dosage: 1 APPLICATION DAILY
     Route: 003
  4. CLAFORAN [Concomitant]
     Active Substance: CEFOTAXIME SODIUM
     Indication: PRODUCT USED FOR UNKNOWN INDICATION
     Dosage: UNK
     Route: 065
     Dates: end: 20151115
  5. RIFADINE [Concomitant]
     Active Substance: RIFAMPIN
     Indication: STAPHYLOCOCCAL ABSCESS
     Dosage: 300 MG, MORNING
     Route: 065
  6. BRISTOPEN [Concomitant]
     Active Substance: OXACILLIN SODIUM
     Indication: STAPHYLOCOCCAL ABSCESS
     Dosage: 1 DF, UNK
     Route: 065
  7. PYOSTACINE [Concomitant]
     Active Substance: PRISTINAMYCIN
     Indication: ANTIBIOTIC THERAPY
     Dosage: 1000 MG, TID
     Route: 065
  8. BRISTOPEN [Concomitant]
     Active Substance: OXACILLIN SODIUM
     Indication: URINARY TRACT INFECTION
  9. RIFADINE [Concomitant]
     Active Substance: RIFAMPIN
     Dosage: 900 MG, EVENINGUKN
     Route: 065
  10. CALCIPARINE [Concomitant]
     Active Substance: HEPARIN CALCIUM
     Indication: PRODUCT USED FOR UNKNOWN INDICATION
     Dosage: 0.2 DF, BID
  11. BACTRIM [Suspect]
     Active Substance: SULFAMETHOXAZOLE\TRIMETHOPRIM
     Indication: DEVICE RELATED INFECTION
     Dosage: 1 DF, TID
     Route: 048
     Dates: start: 20151009, end: 20151103
  12. LEVOTHYROXINE. [Concomitant]
     Active Substance: LEVOTHYROXINE
     Indication: PRODUCT USED FOR UNKNOWN INDICATION
     Dosage: 1 DF, QD

REACTIONS (2)
  - Eczema [Recovered/Resolved]
  - Hyperthermia [Recovered/Resolved]

NARRATIVE: CASE EVENT DATE: 201510
